FAERS Safety Report 13191233 (Version 1)
Quarter: 2017Q1

REPORT INFORMATION
  Report Type: Spontaneous
  Country: US (occurrence: US)
  Receive Date: 20170207
  Receipt Date: 20170207
  Transmission Date: 20170428
  Serious: No
  Sender: FDA-Public Use
  Company Number: US-ASTRAZENECA-2017SE10451

PATIENT
  Age: 26951 Day
  Sex: Female
  Weight: 70.8 kg

DRUGS (1)
  1. BYDUREON [Suspect]
     Active Substance: EXENATIDE
     Indication: TYPE 2 DIABETES MELLITUS
     Route: 058
     Dates: start: 2014

REACTIONS (3)
  - Injection site extravasation [Unknown]
  - Intentional device misuse [Unknown]
  - Underdose [Unknown]

NARRATIVE: CASE EVENT DATE: 20170114
